FAERS Safety Report 5285606-2 (Version None)
Quarter: 2007Q1

REPORT INFORMATION
  Report Type: 
  Country: None (occurrence: None)
  Receive Date: 20070116
  Receipt Date: 20061128
  Transmission Date: 20070707
  Serious: No
  Sender: FDA-Public Use
  Company Number: 2006SP004194

PATIENT
  Age: 51 Year
  Sex: Female
  Weight: 48.5349 kg

DRUGS (6)
  1. LUNESTA [Suspect]
     Indication: INSOMNIA
     Dosage: 3 MG; HS; ORAL
     Route: 048
     Dates: start: 20061101, end: 20061101
  2. CORTISONE ACETATE [Interacting]
  3. ACIPHEX [Concomitant]
  4. ZANTAC [Concomitant]
  5. TESTOSTERONE [Concomitant]
  6. BUDESONIDE [Concomitant]

REACTIONS (7)
  - ARTHRALGIA [None]
  - COUGH [None]
  - FACIAL PAIN [None]
  - GENERALISED OEDEMA [None]
  - PAIN IN EXTREMITY [None]
  - POOR QUALITY SLEEP [None]
  - VISION BLURRED [None]
